FAERS Safety Report 6395601-8 (Version None)
Quarter: 2009Q4

REPORT INFORMATION
  Report Type: 
  Country: None (occurrence: None)
  Receive Date: 20091009
  Receipt Date: 20090929
  Transmission Date: 20100525
  Serious: Yes (Hospitalization)
  Sender: FDA-Public Use
  Company Number: JP-EISAI INC.-E3810-03086-SPO-JP

PATIENT
  Age: 81 Year
  Sex: Female
  Weight: 38 kg

DRUGS (10)
  1. PARIET (RABEPRAZOLE) [Suspect]
     Indication: REFLUX OESOPHAGITIS
     Route: 048
     Dates: end: 20090602
  2. EVISTA [Concomitant]
     Indication: LUMBAR SPINAL STENOSIS
     Route: 048
     Dates: end: 20090602
  3. BLOPRESS [Concomitant]
     Indication: HYPERTENSION
     Route: 048
  4. LOXONIN [Concomitant]
     Indication: LUMBAR SPINAL STENOSIS
     Route: 048
  5. GLAKAY [Concomitant]
     Indication: OSTEOPOROSIS
     Route: 048
  6. GANATON [Concomitant]
     Indication: GASTRITIS PROPHYLAXIS
     Route: 048
  7. NIFLAN [Concomitant]
     Indication: LUMBAR SPINAL STENOSIS
     Route: 048
  8. METHYCOBAL [Concomitant]
     Indication: LUMBAR SPINAL STENOSIS
     Route: 048
  9. DEPAS [Concomitant]
     Indication: LUMBAR SPINAL STENOSIS
     Route: 048
  10. EPADEL S [Concomitant]
     Indication: LUMBAR SPINAL STENOSIS
     Route: 048

REACTIONS (7)
  - ANTINEUTROPHIL CYTOPLASMIC ANTIBODY POSITIVE [None]
  - DECREASED APPETITE [None]
  - EOSINOPHIL COUNT INCREASED [None]
  - ORGANISING PNEUMONIA [None]
  - PERICARDIAL EFFUSION [None]
  - PLEURAL EFFUSION [None]
  - WEIGHT DECREASED [None]
